FAERS Safety Report 4698619-6 (Version None)
Quarter: 2005Q2

REPORT INFORMATION
  Report Type: 
  Country: None (occurrence: None)
  Receive Date: 20050623
  Receipt Date: 20041021
  Transmission Date: 20051028
  Serious: Yes (Other)
  Sender: FDA-Public Use
  Company Number: NUBN20040018

PATIENT
  Sex: Female

DRUGS (1)
  1. NUBAIN [Suspect]
     Indication: INTENTIONAL MISUSE
     Dosage: VAR PRN IMI/IV
     Route: 030

REACTIONS (3)
  - DRUG ABUSER [None]
  - DRUG DEPENDENCE [None]
  - DRUG WITHDRAWAL SYNDROME [None]
